FAERS Safety Report 26166725 (Version 1)
Quarter: 2025Q4

REPORT INFORMATION
  Report Type: Spontaneous
  Country: US (occurrence: None)
  Receive Date: 20251217
  Receipt Date: 20251217
  Transmission Date: 20260118
  Serious: No
  Sender: UCB
  Company Number: US-UCBSA-2025057372

PATIENT

DRUGS (2)
  1. BIMZELX [Suspect]
     Active Substance: BIMEKIZUMAB-BKZX
     Indication: Psoriasis
     Dosage: 320 MILLIGRAM, EV 8 WEEKS
  2. SOTYKTU [Suspect]
     Active Substance: DEUCRAVACITINIB
     Indication: Melatonin deficiency
     Dosage: UNK

REACTIONS (1)
  - Acne [Recovering/Resolving]
